FAERS Safety Report 11406229 (Version 1)
Quarter: 2015Q3

REPORT INFORMATION
  Report Type: Spontaneous
  Country: US (occurrence: US)
  Receive Date: 20150821
  Receipt Date: 20150821
  Transmission Date: 20151125
  Serious: No
  Sender: FDA-Public Use
  Company Number: US-ASTRAZENECA-2015SE65228

PATIENT
  Sex: Male
  Weight: 117.9 kg

DRUGS (14)
  1. BYDUREON [Suspect]
     Active Substance: EXENATIDE
     Indication: TYPE 2 DIABETES MELLITUS
     Route: 058
  2. LISINOPRIL. [Concomitant]
     Active Substance: LISINOPRIL
  3. TRUVADA [Concomitant]
     Active Substance: EMTRICITABINE\TENOFOVIR DISOPROXIL FUMARATE
     Dosage: 200-300 MG
     Route: 048
  4. CETIRIZINE HCL [Concomitant]
     Active Substance: CETIRIZINE HYDROCHLORIDE
  5. RANITIDINE [Concomitant]
     Active Substance: RANITIDINE\RANITIDINE HYDROCHLORIDE
  6. ASPIRIN. [Concomitant]
     Active Substance: ASPIRIN
  7. GLIPIZIDE. [Concomitant]
     Active Substance: GLIPIZIDE
  8. DCIDOPHILUS [Concomitant]
     Indication: PROBIOTIC THERAPY
  9. PRAVASTATIN [Concomitant]
     Active Substance: PRAVASTATIN\PRAVASTATIN SODIUM
  10. NITROSTAT [Concomitant]
     Active Substance: NITROGLYCERIN
  11. METOPROLOL [Concomitant]
     Active Substance: METOPROLOL
  12. VITAMIN D [Concomitant]
     Active Substance: CHOLECALCIFEROL
     Dosage: 100
  13. FLONASE [Concomitant]
     Active Substance: FLUTICASONE PROPIONATE
  14. MULTIVITAMIN [Concomitant]
     Active Substance: VITAMINS

REACTIONS (6)
  - Middle insomnia [Unknown]
  - Injection site mass [Unknown]
  - Flatulence [Unknown]
  - Injection site haemorrhage [Unknown]
  - Muscle spasms [Unknown]
  - Product quality issue [Unknown]
